FAERS Safety Report 5505363-1 (Version None)
Quarter: 2007Q4

REPORT INFORMATION
  Report Type: 
  Country: None (occurrence: None)
  Receive Date: 20071102
  Receipt Date: 20071024
  Transmission Date: 20080405
  Serious: Yes (Hospitalization)
  Sender: FDA-Public Use
  Company Number: FR-JNJFOC-20071006123

PATIENT
  Age: 93 Year
  Sex: Female

DRUGS (5)
  1. OFLOCET [Suspect]
     Indication: LUNG DISORDER
     Route: 048
     Dates: start: 20070811, end: 20070824
  2. LASIX [Suspect]
     Indication: CARDIAC FAILURE
     Route: 048
     Dates: start: 20070820, end: 20070824
  3. AUGMENTIN '125' [Suspect]
     Indication: LUNG DISORDER
     Route: 048
  4. IMOVANE [Concomitant]
     Route: 048
  5. IMOVANE [Concomitant]
     Indication: SLEEP DISORDER
     Route: 048

REACTIONS (1)
  - ACUTE GENERALISED EXANTHEMATOUS PUSTULOSIS [None]
